FAERS Safety Report 7012665-9 (Version None)
Quarter: 2010Q3

REPORT INFORMATION
  Report Type: 
  Country: None (occurrence: None)
  Receive Date: 20100924
  Receipt Date: 20100914
  Transmission Date: 20110219
  Serious: Yes (Disabling)
  Sender: FDA-Public Use
  Company Number: B0674322A

PATIENT
  Sex: Female

DRUGS (4)
  1. NIQUITIN MINI LOZENGES [Suspect]
     Indication: PRODUCT USED FOR UNKNOWN INDICATION
     Dosage: 1.5MG SIX TIMES PER DAY
     Route: 002
     Dates: start: 20100825, end: 20100827
  2. CITALOPRAM HYDROBROMIDE [Concomitant]
  3. ANTIBIOTICS [Concomitant]
  4. EYE DROPS [Concomitant]

REACTIONS (6)
  - GLOSSODYNIA [None]
  - ORAL MUCOSAL EXFOLIATION [None]
  - ORAL PAIN [None]
  - OROPHARYNGEAL BLISTERING [None]
  - STOMATITIS [None]
  - TONGUE EXFOLIATION [None]
